FAERS Safety Report 9028705 (Version 2)
Quarter: 2013Q1

REPORT INFORMATION
  Report Type: Spontaneous
  Country: AU (occurrence: AU)
  Receive Date: 20130124
  Receipt Date: 20130206
  Transmission Date: 20140127
  Serious: Yes (Death)
  Sender: FDA-Public Use
  Company Number: PHHY2013AU006626

PATIENT
  Age: 83 Year
  Sex: Female

DRUGS (7)
  1. ACLASTA [Suspect]
     Dosage: UNK UKN, UNK
     Route: 042
     Dates: start: 20091211
  2. ACLASTA [Suspect]
     Dosage: UNK UKN, UNK
     Route: 042
     Dates: start: 20110115
  3. ACLASTA [Suspect]
     Dosage: UNK UKN, UNK
     Route: 042
     Dates: start: 20120222
  4. PANADOL [Concomitant]
     Dosage: UNK UKN, UNK
     Route: 048
  5. PLAVIX [Concomitant]
     Dosage: UNK UKN, UNK
     Route: 048
  6. LOSEC [Concomitant]
     Dosage: 20 MG, BID
     Route: 048
  7. PLAQUENIL [Concomitant]
     Dosage: 200 MG, UNK
     Route: 048

REACTIONS (5)
  - Pneumonia [Fatal]
  - Fall [Fatal]
  - Feeling abnormal [Unknown]
  - Asthenia [Unknown]
  - Arthritis [Unknown]
